FAERS Safety Report 5345759-4 (Version None)
Quarter: 2007Q2

REPORT INFORMATION
  Report Type: 
  Country: None (occurrence: None)
  Receive Date: 20070601
  Receipt Date: 20070518
  Transmission Date: 20071010
  Serious: Yes (Life-Threatening, Hospitalization)
  Sender: FDA-Public Use
  Company Number: 2007000920

PATIENT
  Age: 70 Year
  Sex: Female

DRUGS (5)
  1. TARCEVA [Suspect]
     Indication: PANCREATIC CARCINOMA
     Dosage: 100 MG (QD), ORAL
     Route: 048
     Dates: start: 20070305, end: 20070318
  2. GEMCITABINE [Suspect]
     Indication: PANCREATIC CARCINOMA
     Dosage: QW, INTRAVENOUS
     Route: 042
     Dates: start: 20070305, end: 20070319
  3. PLATINUM COMPOUND NOS [Concomitant]
  4. CITALOPRAM HYDROBROMIDE [Concomitant]
  5. DALTEPARIN SODIUM [Concomitant]

REACTIONS (1)
  - BONE MARROW FAILURE [None]
